FAERS Safety Report 22151425 (Version 1)
Quarter: 2023Q1

REPORT INFORMATION
  Report Type: Spontaneous
  Country: US (occurrence: None)
  Receive Date: 20230328
  Receipt Date: 20230328
  Transmission Date: 20230417
  Serious: Yes (Other)
  Sender: FDA-Public Use
  Company Number: None

PATIENT
  Age: 24 Year
  Sex: Male

DRUGS (1)
  1. OLD SPICE ELKLORD [Suspect]
     Active Substance: ALUMINUM ZIRCONIUM TETRACHLOROHYDREX GLY
     Indication: Personal hygiene
     Dosage: OTHER QUANTITY : 1 1;?
     Dates: start: 20230324, end: 20230326

REACTIONS (1)
  - Chemical burn [None]

NARRATIVE: CASE EVENT DATE: 20230325
